FAERS Safety Report 7454376-1 (Version None)
Quarter: 2011Q2

REPORT INFORMATION
  Report Type: 
  Country: None (occurrence: None)
  Receive Date: 20110503
  Receipt Date: 20101214
  Transmission Date: 20111010
  Serious: Yes (Other)
  Sender: FDA-Public Use
  Company Number: US-BAYER-201015543NA

PATIENT
  Age: 16 Year
  Sex: Female
  Weight: 62.585 kg

DRUGS (4)
  1. YAZ [Suspect]
     Indication: MENSTRUATION IRREGULAR
     Route: 048
     Dates: start: 20060901, end: 20080301
  2. FLUOXETINE HYDROCHLORIDE [Concomitant]
  3. ORTHO TRI-CYCLEN [Concomitant]
  4. PREVACID [Concomitant]

REACTIONS (12)
  - BACK PAIN [None]
  - NAUSEA [None]
  - MEDICAL DIET [None]
  - CHEST PAIN [None]
  - GASTROOESOPHAGEAL REFLUX DISEASE [None]
  - VOMITING [None]
  - CHOLELITHIASIS [None]
  - GALLBLADDER DISORDER [None]
  - PROCEDURAL PAIN [None]
  - ABDOMINAL PAIN [None]
  - CHOLECYSTITIS CHRONIC [None]
  - QUALITY OF LIFE DECREASED [None]
